FAERS Safety Report 13566213 (Version 1)
Quarter: 2017Q2

REPORT INFORMATION
  Report Type: Spontaneous
  Country: US (occurrence: US)
  Receive Date: 20170519
  Receipt Date: 20170519
  Transmission Date: 20170830
  Serious: Yes (Hospitalization)
  Sender: FDA-Public Use
  Company Number: None

PATIENT
  Age: 62 Year
  Sex: Male
  Weight: 85.3 kg

DRUGS (11)
  1. FOLIC ACID. [Concomitant]
     Active Substance: FOLIC ACID
  2. PROTONIX [Concomitant]
     Active Substance: PANTOPRAZOLE SODIUM
  3. DECADRON [Concomitant]
     Active Substance: DEXAMETHASONE
  4. ZYLOPRIM [Concomitant]
     Active Substance: ALLOPURINOL
  5. BENDAMUSTINE [Concomitant]
     Active Substance: BENDAMUSTINE
  6. METHOTREXATE. [Concomitant]
     Active Substance: METHOTREXATE
  7. APIXIBAN [Suspect]
     Active Substance: APIXABAN
     Indication: PULMONARY EMBOLISM
     Route: 048
     Dates: start: 20170201
  8. SENEKOT [Concomitant]
  9. ZOFRAN [Concomitant]
     Active Substance: ONDANSETRON HYDROCHLORIDE
  10. COMPAZINE [Concomitant]
     Active Substance: PROCHLORPERAZINE MALEATE
  11. RITUXAN [Concomitant]
     Active Substance: RITUXIMAB

REACTIONS (4)
  - Dehydration [None]
  - Thrombocytopenia [None]
  - Stomatitis [None]
  - Acute kidney injury [None]

NARRATIVE: CASE EVENT DATE: 20170517
